FAERS Safety Report 15404901 (Version 9)
Quarter: 2018Q4

REPORT INFORMATION
  Report Type: Report from Study
  Country: CA (occurrence: CA)
  Receive Date: 20180920
  Receipt Date: 20181107
  Transmission Date: 20190204
  Serious: Yes (Hospitalization, Other)
  Sender: FDA-Public Use
  Company Number: CA-AMGEN-CANSL2018130091

PATIENT
  Age: 76 Year
  Sex: Male

DRUGS (2)
  1. KYPROLIS [Suspect]
     Active Substance: CARFILZOMIB
     Indication: PLASMA CELL MYELOMA
     Dosage: UNK, 2 TIMES/WK FOR 3 WEEKS WITH ONE WEEK OFF/ DAY 1, 2, 8, 9, 15, 16/ Q CYCLE
     Route: 065
  2. KYPROLIS [Suspect]
     Active Substance: CARFILZOMIB
     Dosage: UNK, DAY 1, 2, 8, 9, 15, 16/ Q CYCLE
     Route: 065
     Dates: end: 20181031

REACTIONS (17)
  - Musculoskeletal pain [Recovering/Resolving]
  - Fatigue [Recovering/Resolving]
  - Back pain [Recovering/Resolving]
  - Depression [Not Recovered/Not Resolved]
  - Body temperature abnormal [Unknown]
  - Renal impairment [Unknown]
  - Malaise [Recovering/Resolving]
  - Chills [Unknown]
  - Pain [Recovering/Resolving]
  - Dyspnoea [Not Recovered/Not Resolved]
  - Somnolence [Recovering/Resolving]
  - Decreased appetite [Not Recovered/Not Resolved]
  - Nausea [Not Recovered/Not Resolved]
  - Asthenia [Unknown]
  - Sepsis [Recovering/Resolving]
  - Anxiety [Not Recovered/Not Resolved]
  - Cough [Recovered/Resolved]

NARRATIVE: CASE EVENT DATE: 2018
